FAERS Safety Report 8520605-6 (Version None)
Quarter: 2012Q3

REPORT INFORMATION
  Report Type: 
  Country: None (occurrence: None)
  Receive Date: 20120719
  Receipt Date: 20120712
  Transmission Date: 20120928
  Serious: Yes (Other)
  Sender: FDA-Public Use
  Company Number: US-PFIZER INC-2012169261

PATIENT
  Sex: Female
  Weight: 115 kg

DRUGS (2)
  1. REVATIO [Suspect]
     Indication: PULMONARY HYPERTENSION
     Dosage: UNK,3X/DAY
     Dates: start: 20120101
  2. REVATIO [Suspect]
     Dosage: UNK,2X/DAY
     Dates: end: 20120101

REACTIONS (5)
  - HYPERSENSITIVITY [None]
  - INCORRECT DOSE ADMINISTERED [None]
  - FLUID RETENTION [None]
  - WEIGHT INCREASED [None]
  - EYELID OEDEMA [None]
